FAERS Safety Report 11661708 (Version 1)
Quarter: 2015Q4

REPORT INFORMATION
  Report Type: Spontaneous
  Country: US (occurrence: US)
  Receive Date: 20151026
  Receipt Date: 20151026
  Transmission Date: 20160304
  Serious: No
  Sender: FDA-Public Use
  Company Number: US-PFIZER INC-2015355165

PATIENT
  Sex: Male

DRUGS (1)
  1. VIAGRA [Suspect]
     Active Substance: SILDENAFIL CITRATE
     Dosage: UNK

REACTIONS (6)
  - Psychomotor hyperactivity [Unknown]
  - Cardiac disorder [Unknown]
  - Eye disorder [Unknown]
  - Back pain [Unknown]
  - Flushing [Unknown]
  - Intentional product misuse [Unknown]
